FAERS Safety Report 23575022 (Version 1)
Quarter: 2024Q1

REPORT INFORMATION
  Report Type: Spontaneous
  Country: JP (occurrence: JP)
  Receive Date: 20240228
  Receipt Date: 20240228
  Transmission Date: 20240410
  Serious: Yes (Hospitalization)
  Sender: FDA-Public Use
  Company Number: JP-Eisai-202314348_FYC_P_1

PATIENT

DRUGS (2)
  1. FYCOMPA [Suspect]
     Active Substance: PERAMPANEL
     Indication: Product used for unknown indication
     Dosage: DOSE AND FREQUENCY UNKNOWN
     Route: 048
  2. FYCOMPA [Suspect]
     Active Substance: PERAMPANEL
     Dosage: FREQUENCY UNKNOWN
     Route: 048

REACTIONS (3)
  - Altered state of consciousness [Recovered/Resolved]
  - Gait disturbance [Unknown]
  - Anticonvulsant drug level increased [Unknown]

NARRATIVE: CASE EVENT DATE: 20231201
